FAERS Safety Report 9421726 (Version 2)
Quarter: 2013Q3

REPORT INFORMATION
  Report Type: Spontaneous
  Country: DE (occurrence: DE)
  Receive Date: 20130726
  Receipt Date: 20130813
  Transmission Date: 20140515
  Serious: Yes (Other)
  Sender: FDA-Public Use
  Company Number: DE-GE HEALTHCARE MEDICAL DIAGNOSTICS-VISP-PR-1307S-0735

PATIENT
  Age: 57 Year
  Sex: Female
  Weight: 64 kg

DRUGS (2)
  1. VISIPAQUE [Suspect]
     Indication: CAROTID ARTERY STENOSIS
     Route: 042
     Dates: start: 20130715, end: 20130715
  2. VISIPAQUE [Suspect]
     Indication: DIAGNOSTIC PROCEDURE

REACTIONS (2)
  - Erythema [Unknown]
  - Swelling [Unknown]
